FAERS Safety Report 4354924-4 (Version None)
Quarter: 2004Q2

REPORT INFORMATION
  Report Type: 
  Country: None (occurrence: None)
  Receive Date: 20040510
  Receipt Date: 20031114
  Transmission Date: 20050107
  Serious: Yes (Other)
  Sender: FDA-Public Use
  Company Number: PHNU2003DE04036

PATIENT
  Age: 48 Year
  Sex: Female

DRUGS (5)
  1. DIOVAN [Suspect]
     Indication: HYPERTENSION
     Dosage: 80 MG, QD (0.5 DF OF 160 MG DF)
     Route: 048
     Dates: start: 20030101
  2. ANTIBIOTICS [Concomitant]
     Dates: start: 20030101, end: 20030101
  3. CLINDAMYCIN PHOSPHATE [Concomitant]
     Dates: start: 20030101, end: 20030101
  4. GLOBOCEF [Concomitant]
     Dates: start: 20030101, end: 20030101
  5. PENICILLIN [Concomitant]
     Dates: start: 20030101, end: 20030101

REACTIONS (9)
  - DERMATITIS BULLOUS [None]
  - DIPLOPIA [None]
  - EXOPHTHALMOS [None]
  - RASH MACULAR [None]
  - SENSATION OF FOREIGN BODY [None]
  - SKIN DISORDER [None]
  - VASCULITIS [None]
  - VISION BLURRED [None]
  - VISUAL DISTURBANCE [None]
